FAERS Safety Report 11969629 (Version 1)
Quarter: 2016Q1

REPORT INFORMATION
  Report Type: Spontaneous
  Country: US (occurrence: US)
  Receive Date: 20160128
  Receipt Date: 20160128
  Transmission Date: 20160526
  Serious: Yes (Hospitalization)
  Sender: FDA-Public Use
  Company Number: US-EMD SERONO-234525J09USA

PATIENT
  Sex: Female
  Weight: 80 kg

DRUGS (6)
  1. TYLENOL [Concomitant]
     Active Substance: ACETAMINOPHEN
     Indication: PREMEDICATION
  2. LOVASTATIN. [Concomitant]
     Active Substance: LOVASTATIN
     Indication: BLOOD CHOLESTEROL INCREASED
  3. METOPROLOL. [Concomitant]
     Active Substance: METOPROLOL
     Indication: HYPERTENSION
  4. LISINOPRIL. [Concomitant]
     Active Substance: LISINOPRIL
     Indication: HYPERTENSION
  5. FAMOTIDINE. [Concomitant]
     Active Substance: FAMOTIDINE
  6. REBIF [Suspect]
     Active Substance: INTERFERON BETA-1A
     Indication: MULTIPLE SCLEROSIS
     Route: 058
     Dates: start: 20050520

REACTIONS (12)
  - Mitral valve stenosis [Recovered/Resolved]
  - Dyspnoea exertional [Recovered/Resolved]
  - Anaemia [Not Recovered/Not Resolved]
  - Injection site pain [Unknown]
  - Asthenia [Recovered/Resolved]
  - Mitral valve incompetence [Recovered/Resolved]
  - Injection site erythema [Unknown]
  - Fatigue [Recovered/Resolved]
  - Injection site mass [Unknown]
  - Pulmonary oedema [Recovered/Resolved]
  - Injection site scar [Unknown]
  - Injection site induration [Unknown]

NARRATIVE: CASE EVENT DATE: 2007
